FAERS Safety Report 8082731-8 (Version None)
Quarter: 2012Q1

REPORT INFORMATION
  Report Type: 
  Country: None (occurrence: None)
  Receive Date: 20120127
  Receipt Date: 20110204
  Transmission Date: 20120608
  Serious: No
  Sender: FDA-Public Use
  Company Number: US-ABBOTT-11P-163-0703818-00

PATIENT
  Sex: Female
  Weight: 78.088 kg

DRUGS (5)
  1. PREDNISONE TAB [Concomitant]
     Indication: PRODUCT USED FOR UNKNOWN INDICATION
     Dosage: WEANING OFF
  2. COLACE [Concomitant]
     Indication: CONSTIPATION PROPHYLAXIS
  3. HUMIRA [Suspect]
     Dates: start: 20110204, end: 20110204
  4. OXYCODONE HCL [Concomitant]
     Indication: PAIN
     Dosage: AS NEEDED
  5. HUMIRA [Suspect]
     Indication: CROHN'S DISEASE
     Dates: start: 20110121, end: 20110121

REACTIONS (3)
  - ARTHRALGIA [None]
  - DRY SKIN [None]
  - SKIN FISSURES [None]
